FAERS Safety Report 19580210 (Version 1)
Quarter: 2021Q3

REPORT INFORMATION
  Report Type: Spontaneous
  Country: CA (occurrence: CA)
  Receive Date: 20210720
  Receipt Date: 20210720
  Transmission Date: 20211014
  Serious: Yes (Other)
  Sender: FDA-Public Use
  Company Number: CA-BEH-2021133993

PATIENT
  Sex: Male
  Weight: 3.28 kg

DRUGS (2)
  1. HUMAN IMMUNOGLOBULIN (INN) [Suspect]
     Active Substance: HUMAN IMMUNOGLOBULIN G
     Indication: PRODUCT USED FOR UNKNOWN INDICATION
     Route: 064
  2. HUMAN IMMUNOGLOBULIN (INN) [Suspect]
     Active Substance: HUMAN IMMUNOGLOBULIN G
     Indication: NEONATAL HAEMOCHROMATOSIS
     Dosage: 1 GRAM PER KILOGRAM
     Route: 042

REACTIONS (9)
  - Serum ferritin increased [Recovered/Resolved]
  - No adverse event [Unknown]
  - Neonatal haemochromatosis [Recovered/Resolved]
  - Off label use [Unknown]
  - Hypoglycaemia neonatal [Recovered/Resolved]
  - Blood fibrinogen decreased [Recovered/Resolved]
  - International normalised ratio increased [Recovered/Resolved]
  - Foetal exposure during pregnancy [Recovered/Resolved]
  - Hepatic function abnormal [Recovered/Resolved]
